FAERS Safety Report 4888336-1 (Version None)
Quarter: 2006Q1

REPORT INFORMATION
  Report Type: 
  Country: None (occurrence: None)
  Receive Date: 20060123
  Receipt Date: 20060119
  Transmission Date: 20060701
  Serious: Yes (Hospitalization)
  Sender: FDA-Public Use
  Company Number: FR-LMS-060014

PATIENT
  Age: 79 Year
  Sex: Female

DRUGS (3)
  1. NABUMETONE [Suspect]
     Dosage: 1G TWICE PER DAY
     Route: 048
  2. LOVENOX [Suspect]
     Indication: PHLEBITIS
     Route: 065
  3. MESALAMINE [Concomitant]
     Indication: PHLEBITIS
     Route: 048

REACTIONS (2)
  - DRUG INTERACTION [None]
  - GASTROINTESTINAL HAEMORRHAGE [None]
